FAERS Safety Report 4983195-0 (Version None)
Quarter: 2006Q2

REPORT INFORMATION
  Report Type: 
  Country: None (occurrence: None)
  Receive Date: 20060426
  Receipt Date: 20060413
  Transmission Date: 20061013
  Serious: Yes (Life-Threatening, Hospitalization, Other)
  Sender: FDA-Public Use
  Company Number: GB-GLAXOSMITHKLINE-B0420495A

PATIENT
  Age: 29 Year
  Sex: Female
  Weight: 44.6 kg

DRUGS (12)
  1. ABACAVIR [Suspect]
     Dosage: 300MG TWICE PER DAY
     Route: 048
     Dates: start: 20060323, end: 20060327
  2. LAMIVUDINE [Suspect]
     Dosage: 100MG PER DAY
     Route: 048
     Dates: start: 20060324, end: 20060328
  3. EFAVIRENZ [Suspect]
     Dosage: 600MG PER DAY
     Route: 048
     Dates: start: 20060323, end: 20060327
  4. RIFAMPICIN [Concomitant]
     Dosage: 450MG PER DAY
     Route: 048
     Dates: start: 20060113
  5. ETHAMBUTOL [Concomitant]
     Dosage: 700MG PER DAY
     Route: 048
     Dates: start: 20060113
  6. FOLIC ACID [Concomitant]
     Route: 048
  7. PARACETAMOL [Concomitant]
     Dosage: 1G PER DAY
     Route: 048
  8. GABAPENTIN [Concomitant]
     Dosage: 300MG PER DAY
     Route: 048
     Dates: end: 20060329
  9. TAZOCIN [Concomitant]
     Dosage: 4.5G PER DAY
     Route: 065
     Dates: start: 20060324, end: 20060330
  10. FLUCONAZOLE [Concomitant]
     Dosage: 50MG PER DAY
     Route: 048
     Dates: start: 20060328
  11. PYRIDOXINE HCL [Concomitant]
     Dosage: 50MG PER DAY
     Route: 048
     Dates: start: 20060113
  12. AMITRIPTYLINE HCL [Concomitant]
     Dosage: 50MG PER DAY
     Route: 048

REACTIONS (1)
  - METABOLIC ACIDOSIS [None]
